FAERS Safety Report 8823966 (Version 3)
Quarter: 2012Q4

REPORT INFORMATION
  Report Type: Report from Study
  Country: US (occurrence: US)
  Receive Date: 20121003
  Receipt Date: 20121108
  Transmission Date: 20130627
  Serious: Yes (Life-Threatening, Hospitalization)
  Sender: FDA-Public Use
  Company Number: US-009507513-1205USA05558

PATIENT
  Age: 31 Year
  Sex: Female
  Weight: 86.36 kg

DRUGS (5)
  1. VORINOSTAT [Suspect]
     Indication: GLIOBLASTOMA MULTIFORME
     Dosage: 200 mg on days 1-3 weekly
     Route: 048
     Dates: start: 20120514
  2. VORINOSTAT [Suspect]
     Dosage: 500 mg, on days 1-7 and 15-21
     Route: 048
     Dates: start: 20120913, end: 20120919
  3. VORINOSTAT [Suspect]
     Dosage: 500 UNK, UNK
     Dates: start: 20120927, end: 20121003
  4. TEMOZOLOMIDE [Suspect]
     Indication: GLIOBLASTOMA MULTIFORME
     Dosage: 75 mg/m2 QD, followed by 4-6 weeks rest
     Route: 048
     Dates: start: 20120514
  5. TEMOZOLOMIDE [Suspect]
     Dosage: 150 mg/m2, days 1-5
     Route: 048
     Dates: start: 20120913, end: 20120917

REACTIONS (3)
  - Lymphocyte count decreased [Unknown]
  - Convulsion [Recovering/Resolving]
  - Embolism [Recovering/Resolving]
